FAERS Safety Report 9370730 (Version 1)
Quarter: 2013Q2

REPORT INFORMATION
  Report Type: Spontaneous
  Country: CA (occurrence: CA)
  Receive Date: 20130626
  Receipt Date: 20130626
  Transmission Date: 20140414
  Serious: Yes (Life-Threatening, Hospitalization, Other)
  Sender: FDA-Public Use
  Company Number: CA-B.I. PHARMACEUTICALS,INC./RIDGEFIELD-2013-CN-01140CN

PATIENT
  Age: 88 Year
  Sex: Male
  Weight: 85 kg

DRUGS (11)
  1. PRADAXA [Suspect]
     Dosage: 220 MG
     Route: 048
  2. AMLODIPINE [Concomitant]
  3. ENALAPRIL [Concomitant]
  4. ESOMEPRAZOLE [Concomitant]
  5. FUROSEMIDE [Concomitant]
  6. GLYBURIDE [Concomitant]
  7. METFORMIN [Concomitant]
  8. MULTIVITAMINE(S) [Concomitant]
  9. SPIRIVA [Concomitant]
  10. SYMBICORT TURBUHALER [Concomitant]
  11. TAMSULOSIN [Concomitant]

REACTIONS (6)
  - Blood glucose increased [Unknown]
  - Chest pain [Unknown]
  - Dyspnoea [Unknown]
  - Haemoptysis [Unknown]
  - Pain [Unknown]
  - Pulmonary embolism [Unknown]
